FAERS Safety Report 15677832 (Version 3)
Quarter: 2023Q1

REPORT INFORMATION
  Report Type: Spontaneous
  Country: NL (occurrence: NL)
  Receive Date: 20181130
  Receipt Date: 20230125
  Transmission Date: 20230417
  Serious: Yes (Hospitalization)
  Sender: FDA-Public Use
  Company Number: PHHY2018NL168848

PATIENT
  Age: 75 Year
  Sex: Male

DRUGS (5)
  1. CAPECITABINE [Suspect]
     Active Substance: CAPECITABINE
     Indication: Gastric cancer
     Dosage: 3300 MG, EVERY 0.5 DAY
     Route: 048
     Dates: start: 20130828, end: 20140219
  2. DOCETAXEL [Suspect]
     Active Substance: DOCETAXEL
     Indication: Gastric cancer
     Dosage: 94 MG, TIW
     Route: 042
     Dates: start: 20130828, end: 20131211
  3. OXALIPLATIN [Suspect]
     Active Substance: OXALIPLATIN
     Indication: Gastric cancer
     Dosage: 109 MG, TIW
     Route: 042
     Dates: start: 20130828, end: 20131211
  4. TRASTUZUMAB [Suspect]
     Active Substance: TRASTUZUMAB
     Indication: Gastric cancer
     Dosage: 400 MG, TIW
     Route: 042
     Dates: start: 20130828, end: 20180725
  5. BEVACIZUMAB [Concomitant]
     Active Substance: BEVACIZUMAB
     Indication: Gastric cancer
     Dosage: 503 MG, TIW
     Route: 042
     Dates: start: 20130828, end: 20180725

REACTIONS (1)
  - Malaise [Unknown]

NARRATIVE: CASE EVENT DATE: 20180810
